FAERS Safety Report 14657977 (Version 1)
Quarter: 2018Q1

REPORT INFORMATION
  Report Type: Spontaneous
  Country: US (occurrence: US)
  Receive Date: 20180320
  Receipt Date: 20180320
  Transmission Date: 20180509
  Serious: No
  Sender: FDA-Public Use
  Company Number: US-TEVA-806017USA

PATIENT
  Age: 59 Year
  Sex: Female

DRUGS (1)
  1. CICLOSPORIN [Suspect]
     Active Substance: CYCLOSPORINE
     Indication: IMMUNE SYSTEM DISORDER
     Dosage: 0.3ML
     Route: 048
     Dates: start: 2017

REACTIONS (3)
  - Blood glucose decreased [Unknown]
  - Tremor [Unknown]
  - Withdrawal syndrome [Unknown]

NARRATIVE: CASE EVENT DATE: 2017
